FAERS Safety Report 25852352 (Version 1)
Quarter: 2025Q3

REPORT INFORMATION
  Report Type: Spontaneous
  Country: US (occurrence: US)
  Receive Date: 20250926
  Receipt Date: 20250926
  Transmission Date: 20251021
  Serious: No
  Sender: PFIZER
  Company Number: US-PFIZER INC-202500191891

PATIENT
  Age: 72 Year
  Sex: Male
  Weight: 81.633 kg

DRUGS (1)
  1. VYNDAMAX [Suspect]
     Active Substance: TAFAMIDIS
     Indication: Amyloidosis
     Dosage: TAKE 1 CAPSULE(S) EVERY DAY BY ORAL ROUTE
     Route: 048
     Dates: start: 2022

REACTIONS (1)
  - Ejection fraction decreased [Unknown]
